FAERS Safety Report 4435605-5 (Version None)
Quarter: 2004Q3

REPORT INFORMATION
  Report Type: 
  Country: None (occurrence: None)
  Receive Date: 20040726
  Receipt Date: 20040503
  Transmission Date: 20050211
  Serious: No
  Sender: FDA-Public Use
  Company Number: USA040566614

PATIENT
  Age: 62 Year
  Sex: Female
  Weight: 95 kg

DRUGS (12)
  1. FORTEO [Suspect]
     Indication: OSTEOPOROSIS
     Dosage: 20 UG DAY
     Dates: start: 20040301
  2. COUMADIN [Concomitant]
  3. AMITRIPTYLINE HCL [Concomitant]
  4. CALCIUM [Concomitant]
  5. VITAMIN D [Concomitant]
  6. OXYCONTIN [Concomitant]
  7. MORPHINE [Concomitant]
  8. BEXTRA [Concomitant]
  9. VALIUM [Concomitant]
  10. PREVACID [Concomitant]
  11. LOPRESSOR [Concomitant]
  12. LIPITOR [Concomitant]

REACTIONS (4)
  - ERYTHEMA [None]
  - FATIGUE [None]
  - FEELING ABNORMAL [None]
  - OEDEMA PERIPHERAL [None]
